FAERS Safety Report 10275509 (Version 1)
Quarter: 2014Q2

REPORT INFORMATION
  Report Type: Spontaneous
  Country: US (occurrence: None)
  Receive Date: 20140630
  Receipt Date: 20140630
  Transmission Date: 20141212
  Serious: Yes (Other)
  Sender: FDA-Public Use
  Company Number: None

PATIENT
  Age: 51 Year
  Sex: Female

DRUGS (1)
  1. HUMIRA [Suspect]
     Indication: CROHN^S DISEASE
     Dosage: 40 MG QOW SUB Q
     Route: 058
     Dates: start: 20140528

REACTIONS (4)
  - Dizziness [None]
  - Nausea [None]
  - Dysstasia [None]
  - Blood pressure increased [None]
